FAERS Safety Report 6136527-4 (Version None)
Quarter: 2009Q1

REPORT INFORMATION
  Report Type: 
  Country: None (occurrence: None)
  Receive Date: 20090330
  Receipt Date: 20090317
  Transmission Date: 20090719
  Serious: Yes (Other)
  Sender: FDA-Public Use
  Company Number: US-PFIZER INC-2006102225

PATIENT
  Sex: Female

DRUGS (9)
  1. PROVERA [Suspect]
     Indication: HORMONE REPLACEMENT THERAPY
     Dosage: 2.5 MG, UNK
     Route: 048
     Dates: start: 19960717, end: 19961106
  2. PROVERA [Suspect]
     Dosage: 10 MG, UNK
     Dates: start: 19960717, end: 19960722
  3. MEDROXYPROGESTERONE AND MEDROXYPROGESTERONE ACETATE [Suspect]
     Indication: HORMONE REPLACEMENT THERAPY
     Dosage: 5 MG, UNK
     Route: 048
     Dates: start: 19950101, end: 19991120
  4. PREMARIN [Suspect]
     Indication: HORMONE REPLACEMENT THERAPY
     Route: 065
     Dates: start: 19950101, end: 20000714
  5. PREMPRO [Suspect]
     Indication: HORMONE REPLACEMENT THERAPY
     Dosage: UNK
     Route: 065
     Dates: start: 20000329, end: 20000701
  6. CYCRIN [Suspect]
     Indication: HORMONE REPLACEMENT THERAPY
     Dosage: 5 MG, UNK
     Route: 065
     Dates: start: 19970101, end: 19980101
  7. PREMARIN [Suspect]
     Dosage: UNK
     Dates: start: 20010807, end: 20050630
  8. VAGIFEM [Suspect]
     Indication: HORMONE REPLACEMENT THERAPY
     Dosage: 25 UG, UNK
     Dates: end: 20020401
  9. SYNTHROID [Suspect]

REACTIONS (1)
  - BREAST CANCER IN SITU [None]
